FAERS Safety Report 23508626 (Version 1)
Quarter: 2024Q1

REPORT INFORMATION
  Report Type: Spontaneous
  Country: FR (occurrence: FR)
  Receive Date: 20240209
  Receipt Date: 20240209
  Transmission Date: 20240409
  Serious: Yes (Other)
  Sender: FDA-Public Use
  Company Number: None

PATIENT
  Age: 61 Year
  Sex: Male
  Weight: 75 kg

DRUGS (11)
  1. LENALIDOMIDE [Suspect]
     Active Substance: LENALIDOMIDE
     Indication: Plasma cell myeloma
     Dosage: 1 IN THE EVENING
     Route: 048
     Dates: start: 20231114, end: 20231128
  2. BACTRIM [Suspect]
     Active Substance: SULFAMETHOXAZOLE\TRIMETHOPRIM
     Indication: Opportunistic infection prophylaxis
     Dosage: 1 TAB MONDAY WEDNESDAY FRIDAY
     Route: 048
     Dates: start: 20231023, end: 20231124
  3. ELIQUIS [Concomitant]
     Active Substance: APIXABAN
     Indication: Thrombosis prophylaxis
     Route: 048
     Dates: start: 202302
  4. AMOXICILLIN [Suspect]
     Active Substance: AMOXICILLIN
     Indication: Opportunistic infection prophylaxis
     Route: 048
     Dates: start: 20231023, end: 20231128
  5. BORTEZOMIB [Suspect]
     Active Substance: BORTEZOMIB
     Indication: Plasma cell myeloma
     Dosage: ON D1,4,5,15 OF EACH CYCLE
     Route: 058
     Dates: start: 20231118, end: 20231118
  6. BORTEZOMIB [Suspect]
     Active Substance: BORTEZOMIB
     Indication: Plasma cell myeloma
     Dosage: ON D1,4,5,15 OF EACH CYCLE
     Route: 058
     Dates: start: 20231117, end: 20231117
  7. BORTEZOMIB [Suspect]
     Active Substance: BORTEZOMIB
     Indication: Plasma cell myeloma
     Dosage: ON D1,4,5,15 OF EACH CYCLE
     Route: 058
     Dates: start: 20231114, end: 20231114
  8. DARATUMUMAB [Suspect]
     Active Substance: DARATUMUMAB
     Indication: Plasma cell myeloma
     Dosage: ON D1,D8,D15,D22 OF EACH CYCLE
     Route: 058
     Dates: start: 20231122, end: 20231122
  9. DARATUMUMAB [Suspect]
     Active Substance: DARATUMUMAB
     Indication: Plasma cell myeloma
     Dosage: ON D1,D8,D15,D22 OF EACH CYCLE
     Route: 058
     Dates: start: 20231114, end: 20231114
  10. VALACYCLOVIR HYDROCHLORIDE [Suspect]
     Active Substance: VALACYCLOVIR HYDROCHLORIDE
     Indication: Opportunistic infection prophylaxis
     Route: 048
     Dates: start: 20231023, end: 20231128
  11. DEXAMETHASONE ACETATE [Suspect]
     Active Substance: DEXAMETHASONE ACETATE
     Indication: Plasma cell myeloma
     Dosage: 1 CAPSULE J1, J2, J4, J5, J8, J9, J11, J12, J15, J22
     Route: 048
     Dates: start: 20231114

REACTIONS (1)
  - Rash maculo-papular [Not Recovered/Not Resolved]

NARRATIVE: CASE EVENT DATE: 20231123
